FAERS Safety Report 10177797 (Version 1)
Quarter: 2014Q2

REPORT INFORMATION
  Report Type: Spontaneous
  Country: US (occurrence: US)
  Receive Date: 20140516
  Receipt Date: 20140516
  Transmission Date: 20141212
  Serious: No
  Sender: FDA-Public Use
  Company Number: US-SANOFI-AVENTIS-2013SA094188

PATIENT
  Age: 74 Year
  Sex: Male

DRUGS (3)
  1. SOLOSTAR [Suspect]
     Indication: TYPE 2 DIABETES MELLITUS
     Dosage: TAKEN FROM-A FEW MONTHS AGO
  2. APIDRA SOLOSTAR [Suspect]
     Indication: TYPE 2 DIABETES MELLITUS
     Dosage: TAKEN FROM-A FEW MONTHS AGO, DOSE- 8-10 UNITS, FREQUENCY- WITH MEALS
     Route: 058
  3. LEVEMIR [Suspect]
     Dosage: DOSE:25 UNIT(S)
     Route: 065

REACTIONS (4)
  - Blood glucose increased [Unknown]
  - Blood glucose decreased [Unknown]
  - Tremor [Unknown]
  - Wrong drug administered [Unknown]
